FAERS Safety Report 6246148-0 (Version None)
Quarter: 2009Q2

REPORT INFORMATION
  Report Type: 
  Country: None (occurrence: None)
  Receive Date: 20090626
  Receipt Date: 20090427
  Transmission Date: 20091009
  Serious: No
  Sender: FDA-Public Use
  Company Number: A0780781A

PATIENT
  Sex: Female

DRUGS (3)
  1. SUMATRIPTAN SUCCINATE [Suspect]
     Dosage: 50MG FOUR TIMES PER DAY
     Route: 048
     Dates: start: 20090101, end: 20090401
  2. ACETAMINOPHEN AND HYDROCODONE BITARTRATE [Concomitant]
  3. METHADONE [Concomitant]

REACTIONS (1)
  - DRUG INEFFECTIVE [None]
